FAERS Safety Report 15847154 (Version 5)
Quarter: 2020Q1

REPORT INFORMATION
  Report Type: Report from Study
  Country: GB (occurrence: GB)
  Receive Date: 20190121
  Receipt Date: 20200324
  Transmission Date: 20200409
  Serious: Yes (Other)
  Sender: FDA-Public Use
  Company Number: GB-BRISTOL-MYERS SQUIBB COMPANY-BMS-2018-098893

PATIENT
  Age: 53 Year
  Sex: Male

DRUGS (4)
  1. NIVOLUMAB [Suspect]
     Active Substance: NIVOLUMAB
     Indication: PRODUCT USED FOR UNKNOWN INDICATION
     Dosage: 4 X 1 MG/KG, Q 21
     Route: 042
     Dates: start: 201802, end: 201803
  2. NIVOLUMAB [Suspect]
     Active Substance: NIVOLUMAB
     Indication: METASTATIC MALIGNANT MELANOMA
     Dosage: 480 MG, QMO (EVERY 28 DAYS)
     Route: 042
     Dates: start: 20170601
  3. IPILIMUMAB [Suspect]
     Active Substance: IPILIMUMAB
     Indication: METASTATIC MALIGNANT MELANOMA
     Dosage: 4 X 3 MG/KG Q 21
     Route: 042
     Dates: start: 201802, end: 201803
  4. NIVOLUMAB [Suspect]
     Active Substance: NIVOLUMAB
     Indication: PRODUCT USED FOR UNKNOWN INDICATION
     Dosage: 480 MG, QMO (EVERY 28 DAYS)
     Route: 042
     Dates: start: 201804

REACTIONS (11)
  - Influenza [Recovered/Resolved]
  - Cough [Recovering/Resolving]
  - Malignant neoplasm progression [Unknown]
  - Tenderness [Unknown]
  - Viral infection [Unknown]
  - Dyspnoea [Unknown]
  - Discomfort [Unknown]
  - Chest discomfort [Unknown]
  - Fatigue [Not Recovered/Not Resolved]
  - Productive cough [Not Recovered/Not Resolved]
  - Musculoskeletal chest pain [Recovering/Resolving]

NARRATIVE: CASE EVENT DATE: 20181010
